FAERS Safety Report 10396184 (Version 2)
Quarter: 2014Q3

REPORT INFORMATION
  Report Type: Spontaneous
  Country: US (occurrence: US)
  Receive Date: 20140820
  Receipt Date: 20140828
  Transmission Date: 20150326
  Serious: Yes (Other)
  Sender: FDA-Public Use
  Company Number: CHPA2014US010663

PATIENT
  Sex: Male

DRUGS (1)
  1. EX-LAX UNKNOWN [Suspect]
     Active Substance: SENNOSIDES

REACTIONS (5)
  - Bowel movement irregularity [Recovering/Resolving]
  - Malaise [Recovering/Resolving]
  - Cholecystitis infective [Recovering/Resolving]
  - Asthenia [Recovering/Resolving]
  - Post procedural haematoma [Recovering/Resolving]

NARRATIVE: CASE EVENT DATE: 201408
